FAERS Safety Report 7573473-3 (Version None)
Quarter: 2011Q2

REPORT INFORMATION
  Report Type: 
  Country: None (occurrence: None)
  Receive Date: 20110627
  Receipt Date: 20110616
  Transmission Date: 20111010
  Serious: Yes (Other)
  Sender: FDA-Public Use
  Company Number: US-JNJFOC-20110512038

PATIENT
  Sex: Female

DRUGS (2)
  1. DOXORUBICIN HCL [Suspect]
     Indication: OVARIAN CANCER
     Route: 042
     Dates: start: 20110101, end: 20110101
  2. DOXORUBICIN HCL [Suspect]
     Route: 042
     Dates: start: 20110427, end: 20110427

REACTIONS (9)
  - HAND-FOOT-AND-MOUTH DISEASE [None]
  - MUSCULOSKELETAL STIFFNESS [None]
  - PLANTAR ERYTHEMA [None]
  - MUCOSAL INFLAMMATION [None]
  - BURNING SENSATION [None]
  - ERYTHEMA [None]
  - EXOSTOSIS [None]
  - BACK PAIN [None]
  - PARAESTHESIA [None]
